FAERS Safety Report 14493148 (Version 1)
Quarter: 2018Q1

REPORT INFORMATION
  Report Type: Spontaneous
  Country: US (occurrence: US)
  Receive Date: 20180206
  Receipt Date: 20180206
  Transmission Date: 20180509
  Serious: No
  Sender: FDA-Public Use
  Company Number: US-AMNEAL PHARMACEUTICALS-2018AMN00044

PATIENT
  Age: 74 Year
  Sex: Female
  Weight: 74.83 kg

DRUGS (4)
  1. DOXEPIN HYDROCHLORIDE. [Suspect]
     Active Substance: DOXEPIN HYDROCHLORIDE
     Indication: PANIC DISORDER
     Dosage: 25 MG, 1X/DAY
     Dates: start: 20171205
  2. DOXEPIN HYDROCHLORIDE. [Suspect]
     Active Substance: DOXEPIN HYDROCHLORIDE
     Indication: ANXIETY
  3. VALIUM [Concomitant]
     Active Substance: DIAZEPAM
  4. ULTRAVATE [Concomitant]
     Active Substance: HALOBETASOL PROPIONATE

REACTIONS (2)
  - Rash [Not Recovered/Not Resolved]
  - Skin lesion [Not Recovered/Not Resolved]

NARRATIVE: CASE EVENT DATE: 201712
